FAERS Safety Report 23655127 (Version 2)
Quarter: 2024Q2

REPORT INFORMATION
  Report Type: Spontaneous
  Country: IT (occurrence: IT)
  Receive Date: 20240320
  Receipt Date: 20240417
  Transmission Date: 20240716
  Serious: Yes (Life-Threatening, Hospitalization)
  Sender: FDA-Public Use
  Company Number: IT-SANDOZ-SDZ2024IT030093

PATIENT
  Sex: Female

DRUGS (1)
  1. RISPERIDONE [Suspect]
     Active Substance: RISPERIDONE
     Indication: Product used for unknown indication
     Dosage: 2.5 ML
     Route: 065

REACTIONS (4)
  - Toxicity to various agents [Recovered/Resolved]
  - Incorrect dose administered by device [Unknown]
  - Dose calculation error [Unknown]
  - Product administration error [Unknown]
